FAERS Safety Report 14742505 (Version 2)
Quarter: 2018Q2

REPORT INFORMATION
  Report Type: Spontaneous
  Country: DE (occurrence: DE)
  Receive Date: 20180410
  Receipt Date: 20180621
  Transmission Date: 20180711
  Serious: Yes (Other)
  Sender: FDA-Public Use
  Company Number: DE-BAYER-2018-067360

PATIENT
  Age: 25 Year
  Sex: Female

DRUGS (1)
  1. JAYDESS [Suspect]
     Active Substance: LEVONORGESTREL
     Indication: CONTRACEPTION
     Dosage: 14 MCG/24HR, CONT
     Route: 015
     Dates: start: 201509, end: 20180222

REACTIONS (3)
  - Pelvic pain [None]
  - Medical device site injury [None]
  - Medical device site burn [None]

NARRATIVE: CASE EVENT DATE: 20180222
